FAERS Safety Report 9394340 (Version 2)
Quarter: 2014Q1

REPORT INFORMATION
  Report Type: Spontaneous
  Country: US (occurrence: US)
  Receive Date: 20130711
  Receipt Date: 20140106
  Transmission Date: 20141002
  Serious: No
  Sender: FDA-Public Use
  Company Number: US-009507513-1307USA001533

PATIENT
  Sex: Male

DRUGS (4)
  1. ZOCOR [Suspect]
     Dosage: UNK
     Route: 048
  2. LIPITOR [Suspect]
     Dosage: 10 MG, UNK
     Dates: start: 1998
  3. LIPITOR [Suspect]
     Dosage: 40 MG, UNK
  4. LIPITOR [Suspect]
     Dosage: 20 MG, UNK

REACTIONS (2)
  - VIIth nerve paralysis [Unknown]
  - Cranial nerve disorder [Recovered/Resolved]
